FAERS Safety Report 7410050-9 (Version None)
Quarter: 2011Q2

REPORT INFORMATION
  Report Type: 
  Country: None (occurrence: None)
  Receive Date: 20110412
  Receipt Date: 20100727
  Transmission Date: 20111010
  Serious: No
  Sender: FDA-Public Use
  Company Number: US-BAUSCH-2010BL004071

PATIENT
  Age: 73 Year
  Sex: Female

DRUGS (3)
  1. LEVOBUNOLOL HYDROCHLORIDE [Suspect]
     Route: 047
     Dates: start: 20100721
  2. LEVOBUNOLOL HYDROCHLORIDE [Suspect]
     Indication: INTRAOCULAR PRESSURE INCREASED
     Route: 047
     Dates: start: 20091001, end: 20100720
  3. TRAVATAN [Concomitant]
     Indication: INTRAOCULAR PRESSURE INCREASED
     Route: 047
     Dates: start: 20090601

REACTIONS (2)
  - INTRAOCULAR PRESSURE INCREASED [None]
  - DRUG EFFECT DECREASED [None]
